FAERS Safety Report 7605335-7 (Version None)
Quarter: 2011Q3

REPORT INFORMATION
  Report Type: 
  Country: None (occurrence: None)
  Receive Date: 20110713
  Receipt Date: 20110701
  Transmission Date: 20111222
  Serious: Yes (Other)
  Sender: FDA-Public Use
  Company Number: FR-JNJFOC-20110610916

PATIENT
  Sex: Male
  Weight: 60 kg

DRUGS (8)
  1. NORVIR [Suspect]
     Route: 048
     Dates: start: 20110405, end: 20110606
  2. COTRIM [Concomitant]
     Indication: OPPORTUNISTIC INFECTION PROPHYLAXIS
     Route: 048
     Dates: start: 20110118
  3. DAFALGAN CODEINE [Concomitant]
     Indication: PAIN
     Route: 048
     Dates: start: 20110419
  4. TMC114 [Suspect]
     Route: 048
     Dates: start: 20110314, end: 20110330
  5. TRUVADA [Suspect]
     Route: 048
     Dates: start: 20110405, end: 20110606
  6. NORVIR [Suspect]
     Indication: HIV INFECTION
     Route: 048
     Dates: start: 20110314, end: 20110330
  7. TRUVADA [Suspect]
     Indication: HIV INFECTION
     Route: 048
     Dates: start: 20110314, end: 20110330
  8. TMC114 [Suspect]
     Indication: HIV INFECTION
     Route: 048
     Dates: start: 20110405, end: 20110606

REACTIONS (13)
  - DECREASED APPETITE [None]
  - VOMITING [None]
  - DYSGEUSIA [None]
  - INFLUENZA [None]
  - ELECTROCARDIOGRAM REPOLARISATION ABNORMALITY [None]
  - WEIGHT DECREASED [None]
  - HEADACHE [None]
  - DRUG INTOLERANCE [None]
  - ABDOMINAL PAIN [None]
  - DYSPEPSIA [None]
  - NAUSEA [None]
  - GAMMA-GLUTAMYLTRANSFERASE INCREASED [None]
  - CYTOLYTIC HEPATITIS [None]
